FAERS Safety Report 19233677 (Version 4)
Quarter: 2021Q4

REPORT INFORMATION
  Report Type: Spontaneous
  Country: US (occurrence: US)
  Receive Date: 20210507
  Receipt Date: 20211118
  Transmission Date: 20220304
  Serious: Yes (Other)
  Sender: FDA-Public Use
  Company Number: US-AMGEN-USASP2021066586

PATIENT
  Sex: Female

DRUGS (3)
  1. OTEZLA [Suspect]
     Active Substance: APREMILAST
     Indication: Psoriatic arthropathy
     Dosage: UNK
     Route: 065
     Dates: start: 202004
  2. OTEZLA [Suspect]
     Active Substance: APREMILAST
     Indication: Psoriasis
  3. ENBREL [Suspect]
     Active Substance: ETANERCEPT
     Indication: Psoriatic arthropathy
     Dosage: UNK
     Route: 065

REACTIONS (8)
  - Psoriatic arthropathy [Not Recovered/Not Resolved]
  - Feeling abnormal [Unknown]
  - Nerve injury [Unknown]
  - Adverse event [Unknown]
  - Stress [Unknown]
  - Hypersomnia [Unknown]
  - Psoriasis [Not Recovered/Not Resolved]
  - Depression [Unknown]
